FAERS Safety Report 7403267-0 (Version None)
Quarter: 2011Q2

REPORT INFORMATION
  Report Type: 
  Country: None (occurrence: None)
  Receive Date: 20110408
  Receipt Date: 20110404
  Transmission Date: 20111010
  Serious: Yes (Other)
  Sender: FDA-Public Use
  Company Number: US-JNJFOC-20110402576

PATIENT
  Sex: Male
  Weight: 72.58 kg

DRUGS (3)
  1. OXYCODONE [Concomitant]
     Indication: BACK PAIN
     Route: 048
  2. NUCYNTA [Suspect]
     Route: 048
  3. NUCYNTA [Suspect]
     Indication: BACK PAIN
     Route: 048

REACTIONS (9)
  - DEPRESSION [None]
  - ABNORMAL LOSS OF WEIGHT [None]
  - WITHDRAWAL SYNDROME [None]
  - PRODUCT QUALITY ISSUE [None]
  - ANXIETY [None]
  - WRONG TECHNIQUE IN DRUG USAGE PROCESS [None]
  - DECREASED APPETITE [None]
  - CONFUSIONAL STATE [None]
  - TREMOR [None]
